FAERS Safety Report 4626290-8 (Version None)
Quarter: 2005Q2

REPORT INFORMATION
  Report Type: 
  Country: None (occurrence: None)
  Receive Date: 20050404
  Receipt Date: 20050323
  Transmission Date: 20051028
  Serious: Yes (Other)
  Sender: FDA-Public Use
  Company Number: US-ROCHE-399694

PATIENT

DRUGS (1)
  1. XELODA [Suspect]
     Route: 048

REACTIONS (1)
  - GASTROINTESTINAL TOXICITY [None]
